APPROVED DRUG PRODUCT: FUROSEMIDE
Active Ingredient: FUROSEMIDE
Strength: 10MG/ML
Dosage Form/Route: SOLUTION;ORAL
Application: A070655 | Product #001
Applicant: PHARMOBEDIENT CONSULTING
Approved: Oct 2, 1987 | RLD: No | RS: No | Type: DISCN